FAERS Safety Report 12121380 (Version 1)
Quarter: 2016Q1

REPORT INFORMATION
  Report Type: Spontaneous
  Country: US (occurrence: US)
  Receive Date: 20160226
  Receipt Date: 20160226
  Transmission Date: 20160526
  Serious: No
  Sender: FDA-Public Use
  Company Number: US-ALLERGAN-1415983US

PATIENT
  Age: 74 Year
  Sex: Female

DRUGS (4)
  1. REFRESH OPTIVE [Suspect]
     Active Substance: CARBOXYMETHYLCELLULOSE SODIUM\GLYCERIN
     Indication: EYE HAEMORRHAGE
     Dosage: 1-2 GTTS QD-BID
     Route: 047
     Dates: start: 20140715
  2. MVI [Concomitant]
     Active Substance: VITAMINS
     Indication: SUPPLEMENTATION THERAPY
     Dosage: UNK
     Route: 048
  3. ASA [Concomitant]
     Active Substance: ASPIRIN
     Indication: PROPHYLAXIS
     Dosage: 81 MG, UNK
     Route: 048
  4. VITAMIN C [Concomitant]
     Active Substance: ASCORBIC ACID
     Indication: SUPPLEMENTATION THERAPY
     Dosage: UNK
     Route: 048

REACTIONS (3)
  - Off label use [Unknown]
  - Ocular hyperaemia [Not Recovered/Not Resolved]
  - Eye pain [Not Recovered/Not Resolved]

NARRATIVE: CASE EVENT DATE: 20140715
